FAERS Safety Report 8339253-6 (Version None)
Quarter: 2012Q2

REPORT INFORMATION
  Report Type: 
  Country: None (occurrence: None)
  Receive Date: 20120507
  Receipt Date: 20120423
  Transmission Date: 20120825
  Serious: Yes (Other)
  Sender: FDA-Public Use
  Company Number: CA-JNJFOC-20120410914

PATIENT
  Sex: Female
  Weight: 90.45 kg

DRUGS (5)
  1. DIPROLENE [Concomitant]
     Route: 065
  2. ASPIRIN [Concomitant]
     Route: 065
  3. CLOPIDOGREL [Concomitant]
     Route: 065
  4. ATORVASTATIN CALCIUM [Concomitant]
     Route: 065
  5. REMICADE [Suspect]
     Indication: PSORIATIC ARTHROPATHY
     Route: 042
     Dates: start: 20120423

REACTIONS (8)
  - TREMOR [None]
  - LOSS OF CONSCIOUSNESS [None]
  - EYE DISORDER [None]
  - FEELING HOT [None]
  - INFUSION RELATED REACTION [None]
  - CONTUSION [None]
  - MUSCULOSKELETAL STIFFNESS [None]
  - HYPERHIDROSIS [None]
